FAERS Safety Report 7005426-8 (Version None)
Quarter: 2010Q3

REPORT INFORMATION
  Report Type: 
  Country: None (occurrence: None)
  Receive Date: 20100921
  Receipt Date: 20100915
  Transmission Date: 20110219
  Serious: Yes (Death, Life-Threatening, Hospitalization, Other)
  Sender: FDA-Public Use
  Company Number: GR-ROXANE LABORATORIES, INC.-2010-RO-01230RO

PATIENT
  Age: 49 Year
  Sex: Male

DRUGS (9)
  1. CYCLOPHOSPHAMIDE [Suspect]
     Indication: VASCULITIS
     Route: 048
  2. PREDNISOLONE [Suspect]
     Indication: VASCULITIS
  3. PREDNISOLONE [Suspect]
     Dosage: 60 MG
  4. CEFTRIAXONE [Suspect]
     Indication: NOSOCOMIAL INFECTION
  5. VANCOMYCIN [Suspect]
     Indication: NOSOCOMIAL INFECTION
  6. METRONIDAZOLE [Suspect]
     Indication: NOSOCOMIAL INFECTION
  7. CEFTAZIDIME [Suspect]
     Indication: EVIDENCE BASED TREATMENT
  8. CIPROFLOXACIN [Suspect]
     Indication: EVIDENCE BASED TREATMENT
  9. ANTIDIABETIC [Concomitant]
     Indication: DIABETES MELLITUS
     Route: 048

REACTIONS (6)
  - CARDIAC ARREST [None]
  - MULTI-ORGAN FAILURE [None]
  - NEUTROPENIA [None]
  - NOSOCOMIAL INFECTION [None]
  - RESPIRATORY FAILURE [None]
  - STRONGYLOIDIASIS [None]
